FAERS Safety Report 8097152-1 (Version None)
Quarter: 2012Q1

REPORT INFORMATION
  Report Type: 
  Country: None (occurrence: None)
  Receive Date: 20120128
  Receipt Date: 20110706
  Transmission Date: 20120608
  Serious: No
  Sender: FDA-Public Use
  Company Number: US-ABBOTT-11P-163-0836683-00

PATIENT
  Age: 59 Year
  Sex: Female

DRUGS (8)
  1. CLONAZEPAM [Concomitant]
     Indication: RESTLESS LEGS SYNDROME
  2. CELEXA [Concomitant]
     Indication: FIBROMYALGIA
  3. FLECTOR PAIN PATCHES [Concomitant]
     Indication: PRODUCT USED FOR UNKNOWN INDICATION
  4. HUMIRA [Suspect]
     Indication: PSORIATIC ARTHROPATHY
     Dates: start: 20040101, end: 20100801
  5. VITAMIN D [Concomitant]
     Indication: PRODUCT USED FOR UNKNOWN INDICATION
  6. HUMIRA [Suspect]
     Dates: start: 20110601
  7. SYNTHROID [Concomitant]
     Indication: PRODUCT USED FOR UNKNOWN INDICATION
  8. ENBREL [Suspect]
     Indication: PRODUCT USED FOR UNKNOWN INDICATION
     Dates: start: 20100801, end: 20101001

REACTIONS (2)
  - UPPER RESPIRATORY TRACT INFECTION [None]
  - DRUG INEFFECTIVE [None]
